FAERS Safety Report 20902242 (Version 3)
Quarter: 2022Q2

REPORT INFORMATION
  Report Type: Spontaneous
  Country: US (occurrence: US)
  Receive Date: 20220601
  Receipt Date: 20220624
  Transmission Date: 20220721
  Serious: Yes (Hospitalization, Disabling, Other)
  Sender: FDA-Public Use
  Company Number: US-PFIZER INC-202200777893

PATIENT
  Age: 65 Year
  Sex: Female
  Weight: 65.76 kg

DRUGS (1)
  1. PAXLOVID [Suspect]
     Active Substance: NIRMATRELVIR\RITONAVIR
     Indication: COVID-19 treatment
     Dosage: 3 DF, 2X/DAY (THREE TABLETS MORNING AND LATE AFTERNOON)
     Dates: start: 20220514, end: 20220518

REACTIONS (10)
  - Dysgeusia [Recovered/Resolved]
  - Decreased appetite [Recovering/Resolving]
  - Weight decreased [Recovering/Resolving]
  - COVID-19 [Recovering/Resolving]
  - Disease recurrence [Recovering/Resolving]
  - Productive cough [Recovered/Resolved]
  - Gastrooesophageal reflux disease [Recovered/Resolved]
  - Diarrhoea [Recovered/Resolved]
  - Musculoskeletal chest pain [Unknown]
  - Product dose omission issue [Recovering/Resolving]

NARRATIVE: CASE EVENT DATE: 20220501
